FAERS Safety Report 4918136-5 (Version None)
Quarter: 2006Q1

REPORT INFORMATION
  Report Type: 
  Country: None (occurrence: None)
  Receive Date: 20060215
  Receipt Date: 20060202
  Transmission Date: 20060701
  Serious: Yes (Hospitalization)
  Sender: FDA-Public Use
  Company Number: 2006018648

PATIENT
  Sex: Male
  Weight: 70 kg

DRUGS (2)
  1. DEPO-MEDROL [Suspect]
     Indication: LIMB INJURY
     Dates: start: 20050401
  2. MARIJUANA (CANNABIS) [Concomitant]

REACTIONS (4)
  - ABNORMAL BEHAVIOUR [None]
  - AGGRESSION [None]
  - AGITATION [None]
  - PSYCHOTIC DISORDER [None]
